FAERS Safety Report 24885122 (Version 1)
Quarter: 2025Q1

REPORT INFORMATION
  Report Type: Spontaneous
  Country: NL (occurrence: NL)
  Receive Date: 20250124
  Receipt Date: 20250124
  Transmission Date: 20250409
  Serious: Yes (Hospitalization)
  Sender: COVIS PHARMA GMBH
  Company Number: None

PATIENT
  Age: 70 Year
  Sex: Female
  Weight: 63 kg

DRUGS (2)
  1. ALVESCO [Suspect]
     Active Substance: CICLESONIDE
     Indication: Asthma
     Dosage: 2X PER DAG EEN PUF
     Route: 055
     Dates: start: 20220315, end: 20241231
  2. ALVESCO [Suspect]
     Active Substance: CICLESONIDE
     Route: 055
     Dates: start: 2018, end: 2020

REACTIONS (2)
  - Arrhythmia [Recovering/Resolving]
  - Blood pressure increased [Recovering/Resolving]
